FAERS Safety Report 7646417-3 (Version None)
Quarter: 2011Q3

REPORT INFORMATION
  Report Type: 
  Country: None (occurrence: None)
  Receive Date: 20110801
  Receipt Date: 20110720
  Transmission Date: 20111222
  Serious: Yes (Other)
  Sender: FDA-Public Use
  Company Number: US-JNJFOC-20110708698

PATIENT
  Sex: Female
  Weight: 59.88 kg

DRUGS (2)
  1. METHOTREXATE [Concomitant]
     Indication: PSORIATIC ARTHROPATHY
     Route: 048
  2. REMICADE [Suspect]
     Indication: PSORIATIC ARTHROPATHY
     Route: 042
     Dates: end: 20110502

REACTIONS (6)
  - HYPOTENSION [None]
  - URTICARIA [None]
  - FATIGUE [None]
  - FLUSHING [None]
  - SOMNOLENCE [None]
  - LOSS OF CONSCIOUSNESS [None]
